FAERS Safety Report 5740424-3 (Version None)
Quarter: 2008Q2

REPORT INFORMATION
  Report Type: 
  Country: None (occurrence: None)
  Receive Date: 20080513
  Receipt Date: 20080501
  Transmission Date: 20081010
  Serious: Yes (Other)
  Sender: FDA-Public Use
  Company Number: 2008AL003727

PATIENT
  Age: 43 Year
  Sex: Female

DRUGS (2)
  1. FLUOXETINE [Suspect]
     Indication: ANXIETY
     Dosage: 60 MG
     Dates: start: 20070701
  2. MIRTAZAPINE [Concomitant]

REACTIONS (1)
  - BRONCHITIS [None]
